FAERS Safety Report 12104936 (Version 5)
Quarter: 2016Q1

REPORT INFORMATION
  Report Type: Spontaneous
  Country: GB (occurrence: GB)
  Receive Date: 20160223
  Receipt Date: 20160314
  Transmission Date: 20160526
  Serious: Yes (Other)
  Sender: FDA-Public Use
  Company Number: PHHY2015GB161686

PATIENT
  Age: 58 Year
  Sex: Female

DRUGS (107)
  1. CLIMESSE [Suspect]
     Active Substance: ESTRADIOL VALERATE\NORETHINDRONE
     Dosage: UNK, QD
     Route: 048
     Dates: start: 20010829
  2. HYDROCORTISONE. [Suspect]
     Active Substance: HYDROCORTISONE
     Dosage: UNK
     Route: 065
     Dates: start: 20110107
  3. XALACOM [Suspect]
     Active Substance: LATANOPROST\TIMOLOL MALEATE
     Dosage: TO RIGHT EYE AT NIGHT (2.5 ML)
     Route: 065
     Dates: start: 20101224, end: 20141020
  4. XALACOM [Suspect]
     Active Substance: LATANOPROST\TIMOLOL MALEATE
     Dosage: TO RIGHT EYE AT NIGHT (2.5 ML)
     Route: 065
     Dates: start: 20110321
  5. XALACOM [Suspect]
     Active Substance: LATANOPROST\TIMOLOL MALEATE
     Dosage: TO RIGHT EYE AT NIGHT (2.5 ML)
     Route: 065
     Dates: start: 20110616
  6. XALACOM [Suspect]
     Active Substance: LATANOPROST\TIMOLOL MALEATE
     Dosage: TO RIGHT EYE AT NIGHT (2.5 ML)
     Route: 065
     Dates: start: 20150501
  7. XALACOM [Suspect]
     Active Substance: LATANOPROST\TIMOLOL MALEATE
     Dosage: TO RIGHT EYE AT NIGHT (2.5 ML)
     Route: 065
     Dates: start: 20120327
  8. XALACOM [Suspect]
     Active Substance: LATANOPROST\TIMOLOL MALEATE
     Dosage: TO RIGHT EYE AT NIGHT (2.5 ML)
     Route: 065
     Dates: start: 20120525
  9. XALACOM [Suspect]
     Active Substance: LATANOPROST\TIMOLOL MALEATE
     Dosage: TO RIGHT EYE AT NIGHT (2.5 ML)
     Route: 065
     Dates: start: 20121210
  10. XALACOM [Suspect]
     Active Substance: LATANOPROST\TIMOLOL MALEATE
     Dosage: TO RIGHT EYE AT NIGHT (2.5 ML)
     Route: 065
     Dates: start: 20130111
  11. XALACOM [Suspect]
     Active Substance: LATANOPROST\TIMOLOL MALEATE
     Dosage: TO RIGHT EYE AT NIGHT (2.5 ML)
     Route: 065
     Dates: start: 20130206
  12. CLIMESSE [Suspect]
     Active Substance: ESTRADIOL VALERATE\NORETHINDRONE
     Indication: HORMONE REPLACEMENT THERAPY
     Dosage: UNK UNK, QD
     Route: 048
     Dates: start: 20000921
  13. CLIMESSE [Suspect]
     Active Substance: ESTRADIOL VALERATE\NORETHINDRONE
     Dosage: UNK, QD
     Route: 048
     Dates: start: 20020902
  14. CLIMESSE [Suspect]
     Active Substance: ESTRADIOL VALERATE\NORETHINDRONE
     Dosage: UNK
     Route: 048
     Dates: start: 20060620
  15. CLIMESSE [Suspect]
     Active Substance: ESTRADIOL VALERATE\NORETHINDRONE
     Dosage: UNK
     Route: 048
     Dates: start: 20131210
  16. CLIMESSE [Suspect]
     Active Substance: ESTRADIOL VALERATE\NORETHINDRONE
     Dosage: UNK
     Route: 048
     Dates: start: 20150401
  17. LATANOPROST. [Suspect]
     Active Substance: LATANOPROST
     Indication: PRODUCT USED FOR UNKNOWN INDICATION
     Dosage: 01 DROP AT NIGHT IN BOTH EYES
     Route: 065
     Dates: start: 20050414
  18. LATANOPROST. [Suspect]
     Active Substance: LATANOPROST
     Dosage: 01 DROP AT NIGHT IN BOTH EYES
     Route: 065
     Dates: start: 20050929
  19. LATANOPROST. [Suspect]
     Active Substance: LATANOPROST
     Dosage: 01 DROP AT NIGHT IN BOTH EYES
     Route: 065
     Dates: start: 20060119
  20. LATANOPROST. [Suspect]
     Active Substance: LATANOPROST
     Dosage: 01 DROP AT NIGHT IN BOTH EYES
     Route: 065
     Dates: start: 20061103
  21. LATANOPROST. [Suspect]
     Active Substance: LATANOPROST
     Dosage: 01 DROP AT NIGHT IN BOTH EYES
     Route: 065
     Dates: start: 20070110
  22. LATANOPROST. [Suspect]
     Active Substance: LATANOPROST
     Dosage: 01 DROP AT NIGHT IN BOTH EYES
     Route: 065
     Dates: start: 20071001
  23. XALACOM [Suspect]
     Active Substance: LATANOPROST\TIMOLOL MALEATE
     Dosage: TO RIGHT EYE AT NIGHT (2.5 ML)
     Route: 065
     Dates: start: 20050607
  24. XALACOM [Suspect]
     Active Substance: LATANOPROST\TIMOLOL MALEATE
     Dosage: TO RIGHT EYE AT NIGHT (2.5 ML)
     Route: 065
     Dates: start: 20141111
  25. XALACOM [Suspect]
     Active Substance: LATANOPROST\TIMOLOL MALEATE
     Dosage: TO RIGHT EYE AT NIGHT (2.5 ML)
     Route: 065
     Dates: start: 20120103
  26. XALACOM [Suspect]
     Active Substance: LATANOPROST\TIMOLOL MALEATE
     Dosage: TO RIGHT EYE AT NIGHT (2.5 ML)
     Route: 065
     Dates: start: 20120224
  27. XALACOM [Suspect]
     Active Substance: LATANOPROST\TIMOLOL MALEATE
     Dosage: TO RIGHT EYE AT NIGHT (2.5 ML)
     Route: 065
     Dates: start: 20121015
  28. INFLUENZA VIRUS VACC SEASONAL INN [Suspect]
     Active Substance: INFLUENZA VIRUS VACCINE
     Indication: IMMUNISATION
     Dosage: .5 ML
     Route: 065
     Dates: start: 20131028, end: 20131028
  29. XALACOM [Suspect]
     Active Substance: LATANOPROST\TIMOLOL MALEATE
     Dosage: TO RIGHT EYE AT NIGHT (2.5 ML)
     Route: 065
     Dates: start: 20110228
  30. XALACOM [Suspect]
     Active Substance: LATANOPROST\TIMOLOL MALEATE
     Dosage: TO RIGHT EYE AT NIGHT (2.5 ML)
     Route: 065
     Dates: start: 20140909
  31. XALACOM [Suspect]
     Active Substance: LATANOPROST\TIMOLOL MALEATE
     Dosage: TO RIGHT EYE AT NIGHT (2.5 ML)
     Route: 065
     Dates: start: 20120423
  32. XALACOM [Suspect]
     Active Substance: LATANOPROST\TIMOLOL MALEATE
     Dosage: TO RIGHT EYE AT NIGHT (2.5 ML)
     Route: 065
     Dates: start: 20120716
  33. XALACOM [Suspect]
     Active Substance: LATANOPROST\TIMOLOL MALEATE
     Dosage: TO RIGHT EYE AT NIGHT (2.5 ML)
     Route: 065
     Dates: start: 20120823
  34. CLIMESSE [Suspect]
     Active Substance: ESTRADIOL VALERATE\NORETHINDRONE
     Dosage: UNK
     Route: 048
     Dates: start: 20050107
  35. CLIMESSE [Suspect]
     Active Substance: ESTRADIOL VALERATE\NORETHINDRONE
     Dosage: UNK
     Route: 048
     Dates: start: 20060105
  36. CLIMESSE [Suspect]
     Active Substance: ESTRADIOL VALERATE\NORETHINDRONE
     Dosage: UNK
     Route: 048
     Dates: start: 20130509
  37. HYDROCORTISONE. [Suspect]
     Active Substance: HYDROCORTISONE
     Indication: PRODUCT USED FOR UNKNOWN INDICATION
     Dosage: 15 G, TID
     Route: 065
     Dates: start: 20020514
  38. LATANOPROST. [Suspect]
     Active Substance: LATANOPROST
     Dosage: 01 DROP AT NIGHT IN BOTH EYES
     Route: 065
     Dates: start: 20070220
  39. LATANOPROST. [Suspect]
     Active Substance: LATANOPROST
     Dosage: 01 DROP AT NIGHT IN BOTH EYES
     Route: 065
     Dates: start: 20070418
  40. LATANOPROST. [Suspect]
     Active Substance: LATANOPROST
     Dosage: 01 DROP AT NIGHT IN BOTH EYES
     Route: 065
     Dates: start: 20070604
  41. XALACOM [Suspect]
     Active Substance: LATANOPROST\TIMOLOL MALEATE
     Dosage: TO RIGHT EYE AT NIGHT (2.5 ML)
     Route: 065
     Dates: start: 20141111, end: 20151116
  42. XALACOM [Suspect]
     Active Substance: LATANOPROST\TIMOLOL MALEATE
     Dosage: TO RIGHT EYE AT NIGHT (2.5 ML)
     Route: 065
     Dates: start: 20150331
  43. XALACOM [Suspect]
     Active Substance: LATANOPROST\TIMOLOL MALEATE
     Dosage: TO RIGHT EYE AT NIGHT (2.5 ML)
     Route: 065
     Dates: start: 20151230
  44. XALACOM [Suspect]
     Active Substance: LATANOPROST\TIMOLOL MALEATE
     Dosage: TO RIGHT EYE AT NIGHT (2.5 ML)
     Route: 065
     Dates: start: 20141216
  45. XALACOM [Suspect]
     Active Substance: LATANOPROST\TIMOLOL MALEATE
     Dosage: TO RIGHT EYE AT NIGHT (2.5 ML)
     Route: 065
     Dates: start: 20151230
  46. XALACOM [Suspect]
     Active Substance: LATANOPROST\TIMOLOL MALEATE
     Dosage: TO RIGHT EYE AT NIGHT (2.5 ML)
     Route: 065
     Dates: start: 20120917
  47. CLIMESSE [Suspect]
     Active Substance: ESTRADIOL VALERATE\NORETHINDRONE
     Dosage: UNK
     Route: 048
     Dates: start: 20061128
  48. CLIMESSE [Suspect]
     Active Substance: ESTRADIOL VALERATE\NORETHINDRONE
     Dosage: UNK
     Route: 048
     Dates: start: 20080421
  49. CLIMESSE [Suspect]
     Active Substance: ESTRADIOL VALERATE\NORETHINDRONE
     Dosage: UNK
     Route: 048
     Dates: start: 20081006
  50. CLIMESSE [Suspect]
     Active Substance: ESTRADIOL VALERATE\NORETHINDRONE
     Dosage: UNK
     Route: 048
     Dates: start: 20100218
  51. CLIMESSE [Suspect]
     Active Substance: ESTRADIOL VALERATE\NORETHINDRONE
     Dosage: UNK
     Route: 048
     Dates: start: 20120612
  52. CLIMESSE [Suspect]
     Active Substance: ESTRADIOL VALERATE\NORETHINDRONE
     Dosage: UNK
     Route: 048
     Dates: start: 20140826
  53. LATANOPROST. [Suspect]
     Active Substance: LATANOPROST
     Dosage: 01 DROP AT NIGHT IN BOTH EYES
     Route: 065
     Dates: start: 20051206
  54. XALACOM [Suspect]
     Active Substance: LATANOPROST\TIMOLOL MALEATE
     Dosage: TO RIGHT EYE AT NIGHT (2.5 ML)
     Route: 065
     Dates: start: 20110120
  55. XALACOM [Suspect]
     Active Substance: LATANOPROST\TIMOLOL MALEATE
     Dosage: TO RIGHT EYE AT NIGHT (2.5 ML)
     Route: 065
     Dates: start: 20151006
  56. XALACOM [Suspect]
     Active Substance: LATANOPROST\TIMOLOL MALEATE
     Dosage: TO RIGHT EYE AT NIGHT (2.5 ML)
     Route: 065
     Dates: start: 20140617
  57. XALACOM [Suspect]
     Active Substance: LATANOPROST\TIMOLOL MALEATE
     Dosage: TO RIGHT EYE AT NIGHT (2.5 ML)
     Route: 065
     Dates: start: 20141020
  58. CLIMESSE [Suspect]
     Active Substance: ESTRADIOL VALERATE\NORETHINDRONE
     Dosage: UNK UNK, QD
     Route: 048
     Dates: start: 20010319
  59. CLIMESSE [Suspect]
     Active Substance: ESTRADIOL VALERATE\NORETHINDRONE
     Dosage: UNK
     Route: 048
     Dates: start: 20050706
  60. CLIMESSE [Suspect]
     Active Substance: ESTRADIOL VALERATE\NORETHINDRONE
     Dosage: UNK
     Route: 048
     Dates: start: 20110119
  61. CLIMESSE [Suspect]
     Active Substance: ESTRADIOL VALERATE\NORETHINDRONE
     Dosage: UNK
     Route: 048
     Dates: start: 20121210
  62. LATANOPROST. [Suspect]
     Active Substance: LATANOPROST
     Dosage: 01 DROP AT NIGHT IN BOTH EYES
     Route: 065
     Dates: start: 20060306
  63. LATANOPROST. [Suspect]
     Active Substance: LATANOPROST
     Dosage: 01 DROP AT NIGHT IN BOTH EYES
     Route: 065
     Dates: start: 20060725
  64. LATANOPROST. [Suspect]
     Active Substance: LATANOPROST
     Dosage: 01 DROP AT NIGHT IN BOTH EYES
     Route: 065
     Dates: start: 20070813
  65. XALACOM [Suspect]
     Active Substance: LATANOPROST\TIMOLOL MALEATE
     Dosage: TO RIGHT EYE AT NIGHT (2.5 ML)
     Route: 065
     Dates: start: 20110512
  66. XALACOM [Suspect]
     Active Substance: LATANOPROST\TIMOLOL MALEATE
     Dosage: TO RIGHT EYE AT NIGHT (2.5 ML)
     Route: 065
     Dates: start: 20110715
  67. XALACOM [Suspect]
     Active Substance: LATANOPROST\TIMOLOL MALEATE
     Dosage: TO RIGHT EYE AT NIGHT (2.5 ML)
     Route: 065
     Dates: start: 20150114
  68. XALACOM [Suspect]
     Active Substance: LATANOPROST\TIMOLOL MALEATE
     Dosage: TO RIGHT EYE AT NIGHT (2.5 ML)
     Route: 065
     Dates: start: 20150305
  69. XALACOM [Suspect]
     Active Substance: LATANOPROST\TIMOLOL MALEATE
     Dosage: TO RIGHT EYE AT NIGHT (2.5 ML)
     Route: 065
     Dates: start: 20141230
  70. XALACOM [Suspect]
     Active Substance: LATANOPROST\TIMOLOL MALEATE
     Dosage: TO RIGHT EYE AT NIGHT (2.5 ML)
     Route: 065
     Dates: start: 20140812
  71. XALACOM [Suspect]
     Active Substance: LATANOPROST\TIMOLOL MALEATE
     Dosage: TO RIGHT EYE AT NIGHT (2.5 ML)
     Route: 065
     Dates: start: 20140425
  72. XALACOM [Suspect]
     Active Substance: LATANOPROST\TIMOLOL MALEATE
     Dosage: TO RIGHT EYE AT NIGHT (2.5 ML)
     Route: 065
     Dates: start: 20140522
  73. AMOXYCILLIN [Concomitant]
     Active Substance: AMOXICILLIN
     Indication: PRODUCT USED FOR UNKNOWN INDICATION
     Dosage: TID (15 CAPSULES)
     Route: 065
     Dates: start: 19900305
  74. CLIMESSE [Suspect]
     Active Substance: ESTRADIOL VALERATE\NORETHINDRONE
     Dosage: UNK
     Route: 048
     Dates: start: 20030210
  75. CLIMESSE [Suspect]
     Active Substance: ESTRADIOL VALERATE\NORETHINDRONE
     Dosage: UNK
     Route: 048
     Dates: start: 20070509
  76. CLIMESSE [Suspect]
     Active Substance: ESTRADIOL VALERATE\NORETHINDRONE
     Dosage: UNK
     Route: 048
     Dates: start: 20090330
  77. CLIMESSE [Suspect]
     Active Substance: ESTRADIOL VALERATE\NORETHINDRONE
     Dosage: UNK
     Route: 048
     Dates: start: 20090904
  78. CLIMESSE [Suspect]
     Active Substance: ESTRADIOL VALERATE\NORETHINDRONE
     Dosage: UNK
     Route: 048
     Dates: start: 20100811
  79. CLIMESSE [Suspect]
     Active Substance: ESTRADIOL VALERATE\NORETHINDRONE
     Dosage: UNK
     Route: 048
     Dates: start: 20140210
  80. LATANOPROST. [Suspect]
     Active Substance: LATANOPROST
     Dosage: 01 DROP AT NIGHT IN BOTH EYES
     Route: 065
     Dates: start: 20050725
  81. LATANOPROST. [Suspect]
     Active Substance: LATANOPROST
     Dosage: 01 DROP AT NIGHT IN BOTH EYES
     Route: 065
     Dates: start: 20060120
  82. TRAVATAN [Suspect]
     Active Substance: TRAVOPROST
     Indication: PRODUCT USED FOR UNKNOWN INDICATION
     Dosage: 1 DF, QHS, AT NIGHT IN BOTH EYES
     Route: 047
     Dates: start: 20100802, end: 20101119
  83. KLIOFEM [Suspect]
     Active Substance: ESTRADIOL\NORETHINDRONE ACETATE
     Indication: PRODUCT USED FOR UNKNOWN INDICATION
     Dosage: UNK, QD
     Route: 065
     Dates: start: 20010207
  84. XALACOM [Suspect]
     Active Substance: LATANOPROST\TIMOLOL MALEATE
     Dosage: TO RIGHT EYE AT NIGHT (2.5 ML)
     Route: 065
     Dates: start: 20150917
  85. XALACOM [Suspect]
     Active Substance: LATANOPROST\TIMOLOL MALEATE
     Dosage: TO RIGHT EYE AT NIGHT (2.5 ML)
     Route: 065
     Dates: start: 20151116
  86. XALACOM [Suspect]
     Active Substance: LATANOPROST\TIMOLOL MALEATE
     Dosage: TO RIGHT EYE AT NIGHT (2.5 ML)
     Route: 065
     Dates: start: 20150603
  87. XALACOM [Suspect]
     Active Substance: LATANOPROST\TIMOLOL MALEATE
     Dosage: TO RIGHT EYE AT NIGHT (2.5 ML)
     Route: 065
     Dates: start: 20140714
  88. XALACOM [Suspect]
     Active Substance: LATANOPROST\TIMOLOL MALEATE
     Dosage: TO RIGHT EYE AT NIGHT (2.5 ML)
     Route: 065
     Dates: start: 20120612
  89. XALACOM [Suspect]
     Active Substance: LATANOPROST\TIMOLOL MALEATE
     Dosage: TO RIGHT EYE AT NIGHT (2.5 ML)
     Route: 065
     Dates: start: 20121112
  90. CLIMESSE [Suspect]
     Active Substance: ESTRADIOL VALERATE\NORETHINDRONE
     Dosage: UNK
     Route: 048
     Dates: start: 20040210
  91. CLIMESSE [Suspect]
     Active Substance: ESTRADIOL VALERATE\NORETHINDRONE
     Dosage: UNK
     Route: 048
     Dates: start: 20071018
  92. CLIMESSE [Suspect]
     Active Substance: ESTRADIOL VALERATE\NORETHINDRONE
     Dosage: UNK
     Route: 048
     Dates: start: 20110707
  93. CLIMESSE [Suspect]
     Active Substance: ESTRADIOL VALERATE\NORETHINDRONE
     Dosage: UNK
     Route: 048
     Dates: start: 20120105
  94. CLIMESSE [Suspect]
     Active Substance: ESTRADIOL VALERATE\NORETHINDRONE
     Dosage: UNK
     Route: 048
     Dates: start: 20140325
  95. LATANOPROST. [Suspect]
     Active Substance: LATANOPROST
     Dosage: 01 DROP AT NIGHT IN BOTH EYES
     Route: 065
     Dates: start: 20050623
  96. LATANOPROST. [Suspect]
     Active Substance: LATANOPROST
     Dosage: 01 DROP AT NIGHT IN BOTH EYES
     Route: 065
     Dates: start: 20060515
  97. LATANOPROST. [Suspect]
     Active Substance: LATANOPROST
     Dosage: 01 DROP AT NIGHT IN BOTH EYES
     Route: 065
     Dates: start: 20060901
  98. LATANOPROST. [Suspect]
     Active Substance: LATANOPROST
     Dosage: 01 DROP AT NIGHT IN BOTH EYES
     Route: 065
     Dates: start: 20071122
  99. LATANOPROST. [Suspect]
     Active Substance: LATANOPROST
     Dosage: 01 DROP AT NIGHT IN BOTH EYES
     Route: 065
     Dates: start: 20080108
  100. XALACOM [Suspect]
     Active Substance: LATANOPROST\TIMOLOL MALEATE
     Indication: PRODUCT USED FOR UNKNOWN INDICATION
     Dosage: TO RIGHT EYE AT NIGHT (2.5 ML)
     Route: 065
     Dates: start: 20050412, end: 20050607
  101. XALACOM [Suspect]
     Active Substance: LATANOPROST\TIMOLOL MALEATE
     Dosage: TO RIGHT EYE AT NIGHT (2.5 ML)
     Route: 065
     Dates: start: 20110426
  102. XALACOM [Suspect]
     Active Substance: LATANOPROST\TIMOLOL MALEATE
     Dosage: TO RIGHT EYE AT NIGHT (2.5 ML)
     Route: 065
     Dates: start: 20150114
  103. XALACOM [Suspect]
     Active Substance: LATANOPROST\TIMOLOL MALEATE
     Dosage: TO RIGHT EYE AT NIGHT (2.5 ML)
     Route: 065
     Dates: start: 20150714
  104. XALACOM [Suspect]
     Active Substance: LATANOPROST\TIMOLOL MALEATE
     Dosage: TO RIGHT EYE AT NIGHT (2.5 ML)
     Route: 065
     Dates: start: 20150819
  105. XALACOM [Suspect]
     Active Substance: LATANOPROST\TIMOLOL MALEATE
     Dosage: TO RIGHT EYE AT NIGHT (2.5 ML)
     Route: 065
     Dates: start: 20150305
  106. XALACOM [Suspect]
     Active Substance: LATANOPROST\TIMOLOL MALEATE
     Dosage: TO RIGHT EYE AT NIGHT (2.5 ML)
     Route: 065
     Dates: start: 20120131
  107. AMOXYCILLIN [Concomitant]
     Active Substance: AMOXICILLIN
     Dosage: TID (21 CAPSULES)
     Route: 065
     Dates: start: 20050107

REACTIONS (7)
  - Seborrhoeic keratosis [Not Recovered/Not Resolved]
  - Multiple sclerosis [Not Recovered/Not Resolved]
  - Finger deformity [Unknown]
  - Glaucoma [Not Recovered/Not Resolved]
  - Facial paralysis [Recovered/Resolved]
  - Haemorrhoids [Not Recovered/Not Resolved]
  - Normal tension glaucoma [Not Recovered/Not Resolved]

NARRATIVE: CASE EVENT DATE: 20021101
